FAERS Safety Report 4575477-1 (Version None)
Quarter: 2005Q1

REPORT INFORMATION
  Report Type: 
  Country: None (occurrence: None)
  Receive Date: 20050128
  Receipt Date: 20050128
  Transmission Date: 20050727
  Serious: Yes (Other)
  Sender: FDA-Public Use
  Company Number: None

PATIENT
  Age: 53 Year
  Sex: Female

DRUGS (5)
  1. BUPROPION [Suspect]
     Dosage: 150 MG BID , PO
     Route: 048
     Dates: start: 20040501, end: 20040601
  2. BENZTROPINE MESYLATE [Concomitant]
  3. FLUPHENAZINE [Concomitant]
  4. ZYPREXA [Concomitant]
  5. LORAZEPAM [Concomitant]

REACTIONS (3)
  - DEPRESSION [None]
  - HALLUCINATION, AUDITORY [None]
  - MULTIPLE SCLEROSIS [None]
